FAERS Safety Report 13068965 (Version 1)
Quarter: 2016Q4

REPORT INFORMATION
  Report Type: Spontaneous
  Country: US (occurrence: US)
  Receive Date: 20161228
  Receipt Date: 20161228
  Transmission Date: 20170207
  Serious: No
  Sender: FDA-Public Use
  Company Number: US-MYLANLABS-2016M1008932

PATIENT
  Sex: Female

DRUGS (1)
  1. LEVETIRACETAM. [Suspect]
     Active Substance: LEVETIRACETAM
     Dosage: UNK

REACTIONS (6)
  - Abdominal pain upper [Not Recovered/Not Resolved]
  - Overdose [Unknown]
  - Somnolence [Not Recovered/Not Resolved]
  - Neck pain [Not Recovered/Not Resolved]
  - Balance disorder [Not Recovered/Not Resolved]
  - Drug administration error [Not Recovered/Not Resolved]
